FAERS Safety Report 14992549 (Version 1)
Quarter: 2018Q2

REPORT INFORMATION
  Report Type: Spontaneous
  Country: DE (occurrence: DE)
  Receive Date: 20180609
  Receipt Date: 20180609
  Transmission Date: 20180711
  Serious: Yes (Hospitalization)
  Sender: FDA-Public Use
  Company Number: DE-TEVA-2018-DE-903707

PATIENT
  Age: 43 Year
  Sex: Female
  Weight: 68 kg

DRUGS (5)
  1. D3-INTERCELL 2000I.E. [Concomitant]
     Dosage: 2000 IE / TAG, 1-0-0
  2. VITAMIN B12 [Concomitant]
     Active Substance: CYANOCOBALAMIN
     Dosage: EVERY 3 DAYS, LAST INGESTION 11.12.2016, MELTING TABLETS
     Route: 048
  3. PREDNISOLON [Concomitant]
     Active Substance: PREDNISOLONE
     Dosage: 1-0-0
     Route: 048
  4. RAMIPRIL. [Suspect]
     Active Substance: RAMIPRIL
     Dosage: BIS 13.12.2016
     Route: 048
  5. ORTHO EVRA [Concomitant]
     Active Substance: ETHINYL ESTRADIOL\NORELGESTROMIN
     Dosage: 07.12.2016 CHANGED, PLASTER TRANSDERMAL
     Route: 003

REACTIONS (5)
  - Asthenia [Unknown]
  - Pruritus [Unknown]
  - Dyspnoea [Unknown]
  - Oral dysaesthesia [Unknown]
  - Rash [Unknown]
